FAERS Safety Report 6081165-5 (Version None)
Quarter: 2009Q1

REPORT INFORMATION
  Report Type: 
  Country: None (occurrence: None)
  Receive Date: 20090213
  Receipt Date: 20090203
  Transmission Date: 20090719
  Serious: Yes (Other)
  Sender: FDA-Public Use
  Company Number: 230065K09CAN

PATIENT
  Age: 33 Year
  Sex: Female

DRUGS (4)
  1. REBIF [Suspect]
     Indication: MULTIPLE SCLEROSIS
     Dates: start: 20060411
  2. REBIF [Suspect]
     Indication: RELAPSING-REMITTING MULTIPLE SCLEROSIS
     Dates: start: 20060411
  3. BIRTH CONTROL (ORAL CONTRACEPTIVE NOS) [Concomitant]
  4. ADVIL LIQUI-GELS [Concomitant]

REACTIONS (7)
  - AGGRESSION [None]
  - AGITATION [None]
  - ANGER [None]
  - ARTHRALGIA [None]
  - CRYING [None]
  - DEPRESSION [None]
  - SELF INJURIOUS BEHAVIOUR [None]
